FAERS Safety Report 24287787 (Version 1)
Quarter: 2024Q3

REPORT INFORMATION
  Report Type: Spontaneous
  Country: US (occurrence: None)
  Receive Date: 20240904
  Receipt Date: 20240904
  Transmission Date: 20241017
  Serious: Yes (Other)
  Sender: Public
  Company Number: None

PATIENT
  Age: 67 Year
  Sex: Male

DRUGS (1)
  1. WEGOVY [Suspect]
     Active Substance: SEMAGLUTIDE
     Indication: Obesity
     Dates: start: 20230512, end: 20230901

REACTIONS (6)
  - Nausea [None]
  - Decreased appetite [None]
  - Abdominal pain [None]
  - Therapy cessation [None]
  - Weight decreased [None]
  - Gallbladder disorder [None]

NARRATIVE: CASE EVENT DATE: 20230512
